FAERS Safety Report 5420248-7 (Version None)
Quarter: 2007Q3

REPORT INFORMATION
  Report Type: 
  Country: None (occurrence: None)
  Receive Date: 20070718
  Receipt Date: 20060815
  Transmission Date: 20080115
  Serious: Yes (Hospitalization, Other)
  Sender: FDA-Public Use
  Company Number: 2006080457

PATIENT
  Age: 48 Year
  Sex: Male
  Weight: 78.9259 kg

DRUGS (1)
  1. CELEBREX [Suspect]
     Indication: FINGER AMPUTATION
     Dosage: 400 MG (200 MG, 2 IN 1 D),
     Dates: start: 19991014

REACTIONS (2)
  - MYOCARDIAL INFARCTION [None]
  - THROMBOSIS [None]
